FAERS Safety Report 25939880 (Version 2)
Quarter: 2025Q4

REPORT INFORMATION
  Report Type: Spontaneous
  Country: US (occurrence: US)
  Receive Date: 20251020
  Receipt Date: 20251030
  Transmission Date: 20260118
  Serious: No
  Sender: ROCHE
  Company Number: US-ROCHE-10000410769

PATIENT
  Sex: Male

DRUGS (2)
  1. HEMLIBRA [Suspect]
     Active Substance: EMICIZUMAB-KXWH
     Indication: Factor VIII deficiency
     Dosage: FROM STRENGTH: 150 MG/ML
     Route: 058
     Dates: start: 202508
  2. HEMLIBRA [Suspect]
     Active Substance: EMICIZUMAB-KXWH
     Dosage: FORM STRENGTH: 105 MG/0.7ML
     Route: 058
     Dates: start: 202508

REACTIONS (1)
  - Haemorrhage [Not Recovered/Not Resolved]
